FAERS Safety Report 10196786 (Version 2)
Quarter: 2014Q2

REPORT INFORMATION
  Report Type: Spontaneous
  Country: ES (occurrence: None)
  Receive Date: 20140522
  Receipt Date: 20140530
  Transmission Date: 20141212
  Serious: Yes (Hospitalization)
  Sender: FDA-Public Use
  Company Number: FK201401820

PATIENT
  Age: 53 Year
  Sex: Female

DRUGS (8)
  1. METHOTREXATE [Suspect]
     Indication: RHEUMATOID ARTHRITIS
     Dosage: D
  2. FOLIC ACID (FOLIC ACID) [Concomitant]
  3. HYDROXYCHLOROQUINE (HYDROXYCHLOROQUINE) (HYDROCHLOROQUINE) [Concomitant]
  4. IBUPROFEN (IBUPROFEN) [Concomitant]
  5. PREDNISONE (PREDNISONE) [Concomitant]
  6. SIMVASTATIN (SIMVASTATIN) [Concomitant]
  7. LEVOTHYROXIN (LEVOTHYROXINE) [Concomitant]
  8. OMEPRAZOLE (OMEPRAZOLE) [Concomitant]

REACTIONS (14)
  - Medication error [None]
  - Toxicity to various agents [None]
  - Mouth ulceration [None]
  - Pancytopenia [None]
  - Renal failure [None]
  - Pulmonary toxicity [None]
  - Hepatotoxicity [None]
  - Hypoproteinaemia [None]
  - Hypokalaemia [None]
  - Skin lesion [None]
  - Erythema [None]
  - Vomiting [None]
  - Atelectasis [None]
  - Pleural effusion [None]
